FAERS Safety Report 10653712 (Version 1)
Quarter: 2014Q4

REPORT INFORMATION
  Report Type: Other
  Country: JP (occurrence: JP)
  Receive Date: 20141216
  Receipt Date: 20141216
  Transmission Date: 20150529
  Serious: Yes (Other)
  Sender: FDA-Public Use
  Company Number: JP-ACTELION-A-CH2014-109293

PATIENT
  Age: 57 Year
  Sex: Female

DRUGS (1)
  1. TRACLEER [Suspect]
     Active Substance: BOSENTAN\BOSENTAN MONOHYDRATE
     Indication: PULMONARY ARTERIAL HYPERTENSION
     Route: 048

REACTIONS (7)
  - Tricuspid valve incompetence [Unknown]
  - Brain natriuretic peptide increased [Unknown]
  - Interstitial lung disease [Unknown]
  - Transvalvular pressure gradient [Unknown]
  - Pulmonary arterial hypertension [Unknown]
  - Condition aggravated [Unknown]
  - Dyspnoea exertional [Unknown]
